FAERS Safety Report 6597213-X (Version None)
Quarter: 2010Q1

REPORT INFORMATION
  Report Type: 
  Country: None (occurrence: None)
  Receive Date: 20100223
  Receipt Date: 20100216
  Transmission Date: 20100710
  Serious: Yes (Hospitalization)
  Sender: FDA-Public Use
  Company Number: PHHO2008CA02789

PATIENT
  Sex: Female
  Weight: 53 kg

DRUGS (2)
  1. PLACEBO COMP-PLA+ [Suspect]
     Indication: RENAL CANCER METASTATIC
     Dosage: UNK
     Route: 048
     Dates: start: 20070524
  2. RAD001 [Suspect]
     Indication: RENAL CANCER METASTATIC
     Dosage: 10 MG, QD
     Route: 048
     Dates: start: 20080220, end: 20080224

REACTIONS (7)
  - ACUTE PRERENAL FAILURE [None]
  - CARDIAC FAILURE CONGESTIVE [None]
  - CEREBRAL HAEMORRHAGE [None]
  - DEHYDRATION [None]
  - HEMIPARESIS [None]
  - HYPOXIA [None]
  - RENAL FAILURE ACUTE [None]
